FAERS Safety Report 22063610 (Version 1)
Quarter: 2023Q1

REPORT INFORMATION
  Report Type: Spontaneous
  Country: US (occurrence: US)
  Receive Date: 20230306
  Receipt Date: 20230306
  Transmission Date: 20230417
  Serious: No
  Sender: FDA-Public Use
  Company Number: US-ELI_LILLY_AND_COMPANY-US202303001994

PATIENT

DRUGS (1)
  1. TRULICITY [Suspect]
     Active Substance: DULAGLUTIDE
     Indication: Crohn^s disease
     Dosage: 0.75 MG, UNKNOWN
     Route: 065
     Dates: start: 20230227

REACTIONS (4)
  - Off label use [Unknown]
  - Headache [Unknown]
  - Chills [Unknown]
  - Vomiting [Unknown]

NARRATIVE: CASE EVENT DATE: 20230228
